FAERS Safety Report 8326400 (Version 3)
Quarter: 2017Q3

REPORT INFORMATION
  Report Type: Spontaneous
  Country: FR (occurrence: FR)
  Receive Date: 20120109
  Receipt Date: 20170727
  Transmission Date: 20171128
  Serious: Yes (Death, Disabling, Congenital Anomaly, Other)
  Sender: FDA-Public Use
  Company Number: FR-PFIZER INC-2012004436

PATIENT
  Sex: Male

DRUGS (4)
  1. CELESTENE [Concomitant]
     Active Substance: BETAMETHASONE
     Dosage: 12 MG, DAILY
     Route: 064
     Dates: start: 20111110, end: 20111111
  2. TENORMIN [Suspect]
     Active Substance: ATENOLOL
     Indication: HYPERTROPHIC CARDIOMYOPATHY
     Dosage: 100 MG, DAILY
     Route: 064
  3. CORDARONE [Suspect]
     Active Substance: AMIODARONE HYDROCHLORIDE
     Indication: HYPERTROPHIC CARDIOMYOPATHY
     Dosage: 200 MG, DAILY
     Route: 064
  4. LOVENOX [Suspect]
     Active Substance: ENOXAPARIN SODIUM
     Indication: HYPERTROPHIC CARDIOMYOPATHY
     Dosage: 8000 IU, 2X/DAY
     Route: 064

REACTIONS (3)
  - Maternal exposure during pregnancy [Fatal]
  - Foetal growth restriction [Fatal]
  - Premature baby [Unknown]

NARRATIVE: CASE EVENT DATE: 20110323
